FAERS Safety Report 18542568 (Version 1)
Quarter: 2020Q4

REPORT INFORMATION
  Report Type: Report from Study
  Country: NL (occurrence: NL)
  Receive Date: 20201124
  Receipt Date: 20201124
  Transmission Date: 20210114
  Serious: Yes (Other)
  Sender: FDA-Public Use
  Company Number: NL-MYLANLABS-2020M1096780

PATIENT
  Age: 28 Year
  Sex: Female
  Weight: 66 kg

DRUGS (2)
  1. LEVOMENTHOL [Concomitant]
     Active Substance: LEVOMENTHOL
     Dosage: 1 X DAILY
  2. GLATIRAMEERACETAAT MYLAN 40 MG/ML [Suspect]
     Active Substance: GLATIRAMER ACETATE
     Indication: MULTIPLE SCLEROSIS
     Dosage: 40 MILLIGRAM, 3XW
     Route: 058
     Dates: start: 20190612

REACTIONS (1)
  - Noninfective encephalitis [Not Recovered/Not Resolved]
